FAERS Safety Report 23847205 (Version 1)
Quarter: 2024Q2

REPORT INFORMATION
  Report Type: Spontaneous
  Country: US (occurrence: US)
  Receive Date: 20240513
  Receipt Date: 20240513
  Transmission Date: 20240716
  Serious: No
  Sender: FDA-Public Use
  Company Number: US-ABBVIE-5756363

PATIENT
  Sex: Female

DRUGS (1)
  1. LASTACAFT [Suspect]
     Active Substance: ALCAFTADINE
     Indication: Product used for unknown indication
     Dosage: FROM STRENGTH: ALCAFTADINE 0.25% SOL
     Route: 047

REACTIONS (2)
  - Product dispensing error [Unknown]
  - Expired product administered [Unknown]
